FAERS Safety Report 16957607 (Version 7)
Quarter: 2020Q4

REPORT INFORMATION
  Report Type: Other
  Country: DE (occurrence: DE)
  Receive Date: 20191024
  Receipt Date: 20201109
  Transmission Date: 20210113
  Serious: Yes (Other)
  Sender: FDA-Public Use
  Company Number: DE-ROCHE-2385886

PATIENT
  Age: 40 Year
  Sex: Female

DRUGS (14)
  1. HEPATITIS B VACCINE [Suspect]
     Active Substance: HEPATITIS B VIRUS VACCINE
     Indication: PRODUCT USED FOR UNKNOWN INDICATION
     Route: 065
  2. SELENASE [Concomitant]
  3. ATOSIL [Concomitant]
  4. PYOLYSIN [Concomitant]
     Indication: WOUND
  5. ESCITALOPRAM [Concomitant]
     Active Substance: ESCITALOPRAM OXALATE
  6. ESTROGEN NOS [Concomitant]
     Active Substance: ESTROGENS
     Dates: start: 202009, end: 2020
  7. OCREVUS [Suspect]
     Active Substance: OCRELIZUMAB
     Indication: RELAPSING-REMITTING MULTIPLE SCLEROSIS
     Route: 042
     Dates: start: 20200305
  8. URIVESC [Concomitant]
     Active Substance: TROSPIUM CHLORIDE
  9. DULOXETINE. [Concomitant]
     Active Substance: DULOXETINE
  10. OCREVUS [Suspect]
     Active Substance: OCRELIZUMAB
     Indication: PRIMARY PROGRESSIVE MULTIPLE SCLEROSIS
     Route: 042
     Dates: start: 20190806
  11. ACICLOVIR [Suspect]
     Active Substance: ACYCLOVIR
     Indication: PRODUCT USED FOR UNKNOWN INDICATION
     Route: 065
  12. L-THYROX [Concomitant]
     Active Substance: LEVOTHYROXINE SODIUM
  13. METHYLSULFONYLMETHANE [Concomitant]
     Active Substance: DIMETHYL SULFONE
  14. BETMIGA [Concomitant]
     Active Substance: MIRABEGRON

REACTIONS (14)
  - Multiple sclerosis [Not Recovered/Not Resolved]
  - Dry skin [Recovered/Resolved]
  - Alopecia [Recovered/Resolved]
  - Inflammation [Recovering/Resolving]
  - Burning sensation [Not Recovered/Not Resolved]
  - Prurigo [Recovered/Resolved]
  - Genital herpes [Recovered/Resolved]
  - Hypersensitivity [Not Recovered/Not Resolved]
  - Hypoaesthesia [Not Recovered/Not Resolved]
  - Urinary incontinence [Recovering/Resolving]
  - Dermatitis allergic [Unknown]
  - Sciatica [Not Recovered/Not Resolved]
  - Skin odour abnormal [Recovered/Resolved]
  - Reaction to excipient [Not Recovered/Not Resolved]

NARRATIVE: CASE EVENT DATE: 20190806
